APPROVED DRUG PRODUCT: LOXITANE C
Active Ingredient: LOXAPINE HYDROCHLORIDE
Strength: EQ 25MG BASE/ML
Dosage Form/Route: CONCENTRATE;ORAL
Application: N017658 | Product #001
Applicant: TEVA BRANDED PHARMACEUTICAL PRODUCTS R AND D INC
Approved: Approved Prior to Jan 1, 1982 | RLD: No | RS: No | Type: DISCN